FAERS Safety Report 8358395-2 (Version None)
Quarter: 2012Q2

REPORT INFORMATION
  Report Type: 
  Country: None (occurrence: None)
  Receive Date: 20120514
  Receipt Date: 20110614
  Transmission Date: 20120825
  Serious: Yes (Hospitalization)
  Sender: FDA-Public Use
  Company Number: US-ALEXION-A201100590

PATIENT
  Sex: Female

DRUGS (1)
  1. SOLIRIS [Suspect]
     Indication: PAROXYSMAL NOCTURNAL HAEMOGLOBINURIA
     Dosage: UNK
     Route: 042

REACTIONS (13)
  - HAEMOGLOBIN DECREASED [None]
  - VAGINAL INFECTION [None]
  - BACK PAIN [None]
  - COLITIS [None]
  - HAEMORRHOIDS [None]
  - FATIGUE [None]
  - ASTHENIA [None]
  - INFECTION [None]
  - DIARRHOEA [None]
  - RECTAL HAEMORRHAGE [None]
  - ABDOMINAL PAIN UPPER [None]
  - HEADACHE [None]
  - PYREXIA [None]
